FAERS Safety Report 4849132-4 (Version None)
Quarter: 2005Q4

REPORT INFORMATION
  Report Type: 
  Country: None (occurrence: None)
  Receive Date: 20051209
  Receipt Date: 20051205
  Transmission Date: 20060501
  Serious: Yes (Other)
  Sender: FDA-Public Use
  Company Number: NL-GLAXOSMITHKLINE-B0403141A

PATIENT
  Age: 48 Year
  Sex: Male

DRUGS (3)
  1. PAROXETINE HYDROCHLORIDE [Suspect]
     Indication: DEPRESSION
     Dates: start: 20020101
  2. EFFEXOR [Concomitant]
     Dosage: 225MG PER DAY
     Dates: start: 20030101, end: 20031101
  3. BROMAZEPAM [Concomitant]
     Dosage: 1TAB FOUR TIMES PER DAY
     Dates: start: 20010405, end: 20031101

REACTIONS (2)
  - AGGRESSION [None]
  - SUICIDAL IDEATION [None]
